FAERS Safety Report 7753303-7 (Version None)
Quarter: 2011Q3

REPORT INFORMATION
  Report Type: 
  Country: None (occurrence: None)
  Receive Date: 20110915
  Receipt Date: 20110907
  Transmission Date: 20111222
  Serious: Yes (Hospitalization)
  Sender: FDA-Public Use
  Company Number: US-UCBSA-040889

PATIENT
  Age: 61 Year
  Sex: Female
  Weight: 128 kg

DRUGS (4)
  1. CARBAMAZEPINE [Concomitant]
     Indication: EPILEPSY
     Dosage: 1600 MG DAILY
     Route: 048
     Dates: start: 20110815
  2. GABAPENTIN [Concomitant]
     Indication: PAIN
     Dosage: 2400 MG DAILY
     Route: 048
     Dates: start: 20060201
  3. LEVETIRACETAM [Suspect]
     Indication: EPILEPSY
     Dosage: 3000 MG DAILY
     Route: 048
     Dates: start: 20080101
  4. TEGRETOL-XR [Concomitant]
     Dosage: UNKNOWN DOSE
     Dates: start: 20110107

REACTIONS (4)
  - INJURY [None]
  - FALL [None]
  - DIZZINESS [None]
  - VISION BLURRED [None]
